FAERS Safety Report 5054360-1 (Version None)
Quarter: 2006Q2

REPORT INFORMATION
  Report Type: 
  Country: None (occurrence: None)
  Receive Date: 20060616
  Receipt Date: 20060508
  Transmission Date: 20061013
  Serious: Yes (Life-Threatening, Hospitalization, Disabling)
  Sender: FDA-Public Use
  Company Number: 224815

PATIENT
  Age: 49 Year
  Sex: Male

DRUGS (5)
  1. AVASTIN [Suspect]
     Indication: COLON CANCER
     Dosage: 325 MG, Q2W
     Dates: start: 20060101, end: 20060303
  2. LEUCOVORIN CALCIUM [Concomitant]
  3. IRINOTECAN HCL [Concomitant]
  4. FLUOROURACIL [Concomitant]
  5. VASOTEC [Concomitant]

REACTIONS (1)
  - PULMONARY EMBOLISM [None]
